FAERS Safety Report 6857138-9 (Version None)
Quarter: 2010Q3

REPORT INFORMATION
  Report Type: 
  Country: None (occurrence: None)
  Receive Date: 20100719
  Receipt Date: 20100713
  Transmission Date: 20110219
  Serious: Yes (Other)
  Sender: FDA-Public Use
  Company Number: B0665962A

PATIENT
  Sex: Female

DRUGS (1)
  1. ZENTEL [Suspect]
     Route: 065
     Dates: start: 20091201

REACTIONS (16)
  - ABNORMAL BEHAVIOUR [None]
  - ASTHENIA [None]
  - BACK PAIN [None]
  - CONTUSION [None]
  - DRUG INEFFECTIVE [None]
  - DYSKINESIA [None]
  - FATIGUE [None]
  - HEADACHE [None]
  - HYPOAESTHESIA [None]
  - INFECTION [None]
  - NAUSEA [None]
  - PYREXIA [None]
  - RASH [None]
  - VISION BLURRED [None]
  - VOMITING [None]
  - YELLOW SKIN [None]
